FAERS Safety Report 21936954 (Version 1)
Quarter: 2023Q1

REPORT INFORMATION
  Report Type: Spontaneous
  Country: AU (occurrence: AU)
  Receive Date: 20230201
  Receipt Date: 20230201
  Transmission Date: 20230417
  Serious: Yes (Death, Other)
  Sender: FDA-Public Use
  Company Number: AU-CIPLA LTD.-2023AU00428

PATIENT

DRUGS (2)
  1. PREGABALIN [Suspect]
     Active Substance: PREGABALIN
     Dosage: UNK
     Route: 065
  2. TRAMADOL HYDROCHLORIDE [Suspect]
     Active Substance: TRAMADOL HYDROCHLORIDE
     Dosage: UNK
     Route: 065

REACTIONS (3)
  - Pneumonia [Fatal]
  - Toxicity to various agents [Fatal]
  - Intentional overdose [Fatal]
